FAERS Safety Report 16923214 (Version 1)
Quarter: 2019Q4

REPORT INFORMATION
  Report Type: Spontaneous
  Country: US (occurrence: US)
  Receive Date: 20191016
  Receipt Date: 20191016
  Transmission Date: 20200122
  Serious: No
  Sender: FDA-Public Use
  Company Number: US-BAXTER-2019BAX020136

PATIENT
  Age: 65 Year
  Sex: Female

DRUGS (2)
  1. HIGHLY CONCENTRATED POTASSIUM CHLORIDE INJECTION [Suspect]
     Active Substance: POTASSIUM CHLORIDE
     Indication: PRODUCT USED FOR UNKNOWN INDICATION
     Route: 065
  2. ETHACRYNIC ACID. [Suspect]
     Active Substance: ETHACRYNIC ACID
     Indication: PRODUCT USED FOR UNKNOWN INDICATION
     Route: 065

REACTIONS (4)
  - Retching [Unknown]
  - Nausea [Unknown]
  - Vomiting [Unknown]
  - Abdominal pain upper [Unknown]
